FAERS Safety Report 20349972 (Version 1)
Quarter: 2022Q1

REPORT INFORMATION
  Report Type: Spontaneous
  Country: US (occurrence: None)
  Receive Date: 20220119
  Receipt Date: 20220119
  Transmission Date: 20220424
  Serious: Yes (Hospitalization)
  Sender: FDA-Public Use
  Company Number: None

PATIENT
  Sex: Male
  Weight: 12.8 kg

DRUGS (3)
  1. CYCLOPHOSPHAMIDE [Suspect]
     Active Substance: CYCLOPHOSPHAMIDE
  2. MESNA [Suspect]
     Active Substance: MESNA
  3. THIOTEPA [Suspect]
     Active Substance: THIOTEPA

REACTIONS (16)
  - Small intestinal obstruction [None]
  - Small intestinal obstruction [None]
  - Hypomagnesaemia [None]
  - Anaemia [None]
  - Platelet count decreased [None]
  - Lymphocyte count decreased [None]
  - Vomiting [None]
  - White blood cell count decreased [None]
  - Neutrophil count decreased [None]
  - Hypoalbuminaemia [None]
  - Sinus tachycardia [None]
  - Dry skin [None]
  - Hypertension [None]
  - Fatigue [None]
  - Hyperglycaemia [None]
  - Anaphylactic reaction [None]

NARRATIVE: CASE EVENT DATE: 20220112
